FAERS Safety Report 6459924-6 (Version None)
Quarter: 2009Q4

REPORT INFORMATION
  Report Type: 
  Country: None (occurrence: None)
  Receive Date: 20091129
  Receipt Date: 20091117
  Transmission Date: 20100525
  Serious: Yes (Other)
  Sender: FDA-Public Use
  Company Number: PHHY2009CA47656

PATIENT
  Sex: Female

DRUGS (37)
  1. ACLASTA [Suspect]
     Indication: OSTEOPOROSIS
     Dosage: 5 MG, UNK
     Dates: start: 20090916
  2. DOXEPIN HCL [Concomitant]
     Dosage: 5 %, QD
     Dates: start: 20091103
  3. HYDROCORTISONE [Concomitant]
     Dosage: 1 %, QD
     Dates: start: 20091103
  4. HYDROCORTISONE [Concomitant]
     Dosage: 1 %, QD
     Dates: start: 20090324
  5. TORADOL [Concomitant]
     Dosage: 10 MG, BID
     Route: 048
     Dates: start: 20091103
  6. SYNTHROID [Concomitant]
     Dosage: 150 MCG ONCE DAILY
     Route: 048
     Dates: start: 20091103
  7. DILANTIN [Concomitant]
     Dosage: UNK
     Dates: start: 20091103
  8. PAXIL [Concomitant]
     Dosage: 20 MG, QD
     Route: 048
     Dates: start: 20091103
  9. GLUMETZA [Concomitant]
     Dosage: 1 DF, QD
     Dates: start: 20091020
  10. LANTUS [Concomitant]
     Dosage: UNK
     Dates: start: 20091014
  11. GABAPENTIN [Concomitant]
     Dosage: 1 DF, Q3H
     Dates: start: 20091014
  12. BETADERM [Concomitant]
     Dosage: 0.1 %, QD
     Dates: start: 20091002
  13. CIPRO XR [Concomitant]
     Dosage: 1000 MG, QD
     Dates: start: 20091001
  14. METFORMIN HCL [Concomitant]
     Dosage: 500 MG, BID
     Dates: start: 20090928
  15. MIACALCIN [Concomitant]
     Dosage: 200 IU, QD
     Route: 045
     Dates: start: 20090817
  16. TRAMACET [Concomitant]
     Dosage: 1 DF, Q4H
     Dates: start: 20090810
  17. TRAMACET [Concomitant]
     Dosage: 1 DF, Q6H
  18. TRAMACET [Concomitant]
     Dosage: 1 DF, PRN
  19. GEN-LAC [Concomitant]
     Dosage: 667 MG/ML, QD
     Dates: start: 20090810
  20. SENNA [Concomitant]
     Dosage: 1 DF, BID
     Dates: start: 20090810
  21. ACTONEL [Concomitant]
     Dosage: 35 MG, QD
     Route: 048
     Dates: start: 20090810
  22. GLUCOMETER [Concomitant]
     Dosage: 200 UNK, QD
     Dates: start: 20090804
  23. DIABETIC LANCETS [Concomitant]
     Dosage: 200 UNK, QD
     Dates: start: 20090804
  24. VENTOLIN [Concomitant]
     Dosage: 1 DF, QD
     Dates: start: 20090804
  25. ADVAIR DISKUS 100/50 [Concomitant]
     Dosage: 1 DF, QD
     Dates: start: 20090804
  26. ALTACE [Concomitant]
     Dosage: 10 MG, QD
     Dates: start: 20090804
  27. DERMOVATE [Concomitant]
     Dosage: 1 DF, QD
     Dates: start: 20090804
  28. FLONASE [Concomitant]
     Dosage: 50 MCG
     Dates: start: 20090113
  29. DICLOFENAC [Concomitant]
     Dosage: 5 %, BID
     Dates: start: 20090113
  30. TWINRIX [Concomitant]
     Dosage: 1 DF, QD
     Dates: start: 20090113
  31. CYANOCOBALAMIN [Concomitant]
     Dosage: 1000 MCG/ML ONCE DAILY
     Dates: start: 20081027
  32. ZOVIRAX [Concomitant]
     Dosage: 1 DF, Q2H
     Dates: start: 20080715
  33. ZOVIRAX [Concomitant]
     Dosage: 1 DF, PRN
  34. KENACOMB [Concomitant]
     Dosage: 1 DF, QD
     Dates: start: 20090715
  35. VIBRAMYCIN [Concomitant]
     Dosage: 100 MG, QD
     Dates: start: 20070612
  36. PENNSAID [Concomitant]
     Dosage: 1 DF, QD
     Dates: start: 20070316
  37. ASPIRIN [Concomitant]
     Dosage: 1 DF, QHS
     Dates: start: 20090316

REACTIONS (3)
  - BLOOD GLUCOSE INCREASED [None]
  - CONCOMITANT DISEASE AGGRAVATED [None]
  - DIABETES MELLITUS [None]
